FAERS Safety Report 15840940 (Version 1)
Quarter: 2019Q1

REPORT INFORMATION
  Report Type: Spontaneous
  Country: US (occurrence: US)
  Receive Date: 20190118
  Receipt Date: 20190118
  Transmission Date: 20190417
  Serious: Yes (Death, Life-Threatening, Hospitalization, Other)
  Sender: FDA-Public Use
  Company Number: US-AMGEN-USASP2019007742

PATIENT
  Age: 75 Year
  Sex: Male
  Weight: 83.4 kg

DRUGS (7)
  1. KYPROLIS [Suspect]
     Active Substance: CARFILZOMIB
     Dosage: 70 MG/M2, (140 MG) QWK
     Route: 042
     Dates: start: 20181127
  2. LOPID [Concomitant]
     Active Substance: GEMFIBROZIL
     Dosage: 600 MG, QD
     Route: 048
  3. SODIUM BICARBONATE. [Concomitant]
     Active Substance: SODIUM BICARBONATE
     Dosage: 1950 MG, BID
     Route: 048
  4. ELIQUIS [Concomitant]
     Active Substance: APIXABAN
     Dosage: 5 MG, BID
     Route: 048
  5. KYPROLIS [Suspect]
     Active Substance: CARFILZOMIB
     Indication: PLASMA CELL MYELOMA
     Dosage: 20 MG/M2, QWK
     Route: 042
     Dates: start: 20181121
  6. DARZALEX [Suspect]
     Active Substance: DARATUMUMAB
     Indication: PLASMA CELL MYELOMA
     Dosage: 1400 MG, QWK
     Route: 042
     Dates: start: 20180316, end: 20181127
  7. AMIODARONE [Concomitant]
     Active Substance: AMIODARONE
     Dosage: 200 MG, TID
     Route: 048

REACTIONS (5)
  - Adverse event [Fatal]
  - Labile blood pressure [Unknown]
  - Dizziness [Unknown]
  - Dyspnoea [Unknown]
  - Off label use [Unknown]

NARRATIVE: CASE EVENT DATE: 20181121
